FAERS Safety Report 5284442-0 (Version None)
Quarter: 2007Q1

REPORT INFORMATION
  Report Type: 
  Country: None (occurrence: None)
  Receive Date: 20061227
  Receipt Date: 20060906
  Transmission Date: 20070707
  Serious: Yes (Disabling)
  Sender: FDA-Public Use
  Company Number: 13475348

PATIENT
  Sex: Female

DRUGS (2)
  1. EMSAM [Suspect]
     Indication: DEPRESSION
     Dosage: 1 DOSAGE FORM, 1/1 DAY TOP
     Route: 061
     Dates: start: 20060523
  2. LAMICTAL [Concomitant]

REACTIONS (1)
  - TENOSYNOVITIS [None]
